FAERS Safety Report 8033538-9 (Version None)
Quarter: 2011Q4

REPORT INFORMATION
  Report Type: 
  Country: None (occurrence: None)
  Receive Date: 20111202
  Receipt Date: 20101007
  Transmission Date: 20120403
  Serious: Yes (Other)
  Sender: FDA-Public Use
  Company Number: WAES 0802USA00749

PATIENT
  Age: 49 Year
  Sex: Female
  Weight: 65.318 kg

DRUGS (4)
  1. FOSAMAX [Suspect]
     Indication: OSTEOPENIA
     Dosage: UNK/DAILY/PO 70 MG/WKY/PO 70 MG/UNK/PO UNK/UNK/PO
     Route: 048
     Dates: start: 20000101, end: 20070813
  2. FOSAMAX [Suspect]
     Indication: OSTEOPENIA
     Dosage: UNK/DAILY/PO 70 MG/WKY/PO 70 MG/UNK/PO UNK/UNK/PO
     Route: 048
     Dates: start: 19970101, end: 20010329
  3. FOSAMAX [Suspect]
     Indication: OSTEOPENIA
     Dosage: UNK/DAILY/PO 70 MG/WKY/PO 70 MG/UNK/PO UNK/UNK/PO
     Route: 048
     Dates: start: 20070430, end: 20070801
  4. FOSAMAX [Suspect]
     Indication: OSTEOPENIA
     Dosage: UNK/DAILY/PO 70 MG/WKY/PO 70 MG/UNK/PO UNK/UNK/PO
     Route: 048
     Dates: start: 20060208, end: 20070426

REACTIONS (47)
  - FATIGUE [None]
  - OSTEOPOROSIS [None]
  - IRRITABLE BOWEL SYNDROME [None]
  - UTERINE LEIOMYOMA [None]
  - MALAISE [None]
  - GASTROOESOPHAGEAL REFLUX DISEASE [None]
  - HYPOGAMMAGLOBULINAEMIA [None]
  - IMMUNE SYSTEM DISORDER [None]
  - UPPER-AIRWAY COUGH SYNDROME [None]
  - ADVERSE EVENT [None]
  - BLOOD PRESSURE INCREASED [None]
  - TOOTHACHE [None]
  - TEMPOROMANDIBULAR JOINT SYNDROME [None]
  - OEDEMA PERIPHERAL [None]
  - MOUTH ULCERATION [None]
  - NASAL CONGESTION [None]
  - ACCIDENT [None]
  - COUGH [None]
  - HYPOTHYROIDISM [None]
  - RASH [None]
  - PAIN IN EXTREMITY [None]
  - MENORRHAGIA [None]
  - CHRONIC SINUSITIS [None]
  - EYE PAIN [None]
  - INTERVERTEBRAL DISC PROTRUSION [None]
  - TOOTH LOSS [None]
  - PHARYNGEAL ULCERATION [None]
  - PAIN [None]
  - OSTEOARTHRITIS [None]
  - NASAL SEPTUM DEVIATION [None]
  - BLOOD IMMUNOGLOBULIN A DECREASED [None]
  - OSTEONECROSIS OF JAW [None]
  - BRUXISM [None]
  - ADVERSE DRUG REACTION [None]
  - BREAST MASS [None]
  - HEADACHE [None]
  - TOOTH FRACTURE [None]
  - SINUS DISORDER [None]
  - RHEUMATOID ARTHRITIS [None]
  - ARTHRALGIA [None]
  - NAUSEA [None]
  - NASOPHARYNGITIS [None]
  - DYSMENORRHOEA [None]
  - HOT FLUSH [None]
  - BLOOD IMMUNOGLOBULIN G DECREASED [None]
  - SNORING [None]
  - PERIODONTAL DISEASE [None]
